FAERS Safety Report 5633617-7 (Version None)
Quarter: 2008Q1

REPORT INFORMATION
  Report Type: 
  Country: None (occurrence: None)
  Receive Date: 20080221
  Receipt Date: 20060822
  Transmission Date: 20080703
  Serious: No
  Sender: FDA-Public Use
  Company Number: AU-ASTRAZENECA-2006AP03156

PATIENT
  Age: 19940 Day
  Sex: Female
  Weight: 58 kg

DRUGS (6)
  1. SEROQUEL [Suspect]
     Indication: DEPRESSION
     Route: 048
     Dates: start: 20050404, end: 20060218
  2. SEROQUEL [Suspect]
     Indication: ANXIETY DISORDER
     Route: 048
     Dates: start: 20050404, end: 20060218
  3. PREMARIN [Concomitant]
     Indication: MENOPAUSAL SYMPTOMS
  4. PROVERA [Concomitant]
     Indication: MENOPAUSAL SYMPTOMS
  5. BLACKMORES FISH OIL [Concomitant]
     Route: 048
  6. FLUVOXAMINE MALEATE [Concomitant]
     Dates: start: 20010815, end: 20060227

REACTIONS (1)
  - THROMBOCYTOPENIA [None]
